FAERS Safety Report 24148744 (Version 1)
Quarter: 2024Q3

REPORT INFORMATION
  Report Type: Spontaneous
  Country: VN (occurrence: VN)
  Receive Date: 20240729
  Receipt Date: 20240729
  Transmission Date: 20241017
  Serious: Yes (Hospitalization, Other)
  Sender: PFIZER
  Company Number: VN-PFIZER INC-PV202400097586

PATIENT
  Age: 63 Year
  Sex: Male

DRUGS (8)
  1. METHYLPREDNISOLONE [Suspect]
     Active Substance: METHYLPREDNISOLONE
     Indication: Gastrointestinal disorder
     Dosage: 32 MG, DAILY FOR TWO WEEKS, FOLLOWED BY A WEEKLY TAPER OF 4 MG
     Route: 048
  2. METHYLPREDNISOLONE [Suspect]
     Active Substance: METHYLPREDNISOLONE
     Indication: Eosinophilic colitis
     Dosage: 16 MG, DAILY
     Route: 048
  3. METHYLPREDNISOLONE [Suspect]
     Active Substance: METHYLPREDNISOLONE
     Indication: Duodenitis
     Dosage: 8 MG, DAILY FOR TWO WEEKS, FOLLOWED BY A WEEKLY DECREASE OF 4 MG
     Route: 048
  4. ALBENDAZOLE [Concomitant]
     Active Substance: ALBENDAZOLE
     Indication: Taeniasis
     Dosage: 400 MG, 2X/DAY
  5. ALBENDAZOLE [Concomitant]
     Active Substance: ALBENDAZOLE
     Indication: Echinococciasis
  6. KETOTIFEN [Concomitant]
     Active Substance: KETOTIFEN
     Indication: Gastrointestinal disorder
     Dosage: 1 MG, 2X/DAY
  7. MONTELUKAST [Concomitant]
     Active Substance: MONTELUKAST SODIUM
     Indication: Gastrointestinal disorder
     Dosage: 10 MG, 1X/DAY
  8. PANTOPRAZOLE [Concomitant]
     Active Substance: PANTOPRAZOLE
     Indication: Duodenal ulcer
     Dosage: 40 MG, DAILY
     Route: 048

REACTIONS (1)
  - Cellulitis [Recovered/Resolved]
